FAERS Safety Report 6740202-2 (Version None)
Quarter: 2010Q2

REPORT INFORMATION
  Report Type: 
  Country: None (occurrence: None)
  Receive Date: 20100525
  Receipt Date: 20100517
  Transmission Date: 20101027
  Serious: Yes (Other)
  Sender: FDA-Public Use
  Company Number: A0859998A

PATIENT
  Age: 67 Year
  Sex: Male

DRUGS (4)
  1. AVANDIA [Suspect]
     Dosage: 8MG TWICE PER DAY
     Route: 048
     Dates: start: 20020101, end: 20100517
  2. LIPITOR [Concomitant]
  3. PLAVIX [Concomitant]
  4. AVODART [Concomitant]

REACTIONS (1)
  - MYOCARDIAL INFARCTION [None]
